FAERS Safety Report 4976591-9 (Version None)
Quarter: 2006Q2

REPORT INFORMATION
  Report Type: 
  Country: None (occurrence: None)
  Receive Date: 20060419
  Receipt Date: 20051006
  Transmission Date: 20061013
  Serious: Yes (Hospitalization)
  Sender: FDA-Public Use
  Company Number: US-MERCK-0510USA06387

PATIENT
  Age: 77 Year
  Sex: Female
  Weight: 57 kg

DRUGS (1)
  1. VIOXX [Suspect]
     Indication: OSTEOARTHRITIS
     Route: 048
     Dates: start: 19990521, end: 20040614

REACTIONS (8)
  - CALCULUS URETERIC [None]
  - HAEMATOMA [None]
  - ISCHAEMIC STROKE [None]
  - PERIPHERAL VASCULAR DISORDER [None]
  - RENAL DISORDER [None]
  - SYNCOPE [None]
  - VASCULAR DEMENTIA [None]
  - WEIGHT DECREASED [None]
